FAERS Safety Report 20997175 (Version 3)
Quarter: 2022Q3

REPORT INFORMATION
  Report Type: Spontaneous
  Country: CA (occurrence: CA)
  Receive Date: 20220623
  Receipt Date: 20220825
  Transmission Date: 20221027
  Serious: Yes (Other)
  Sender: FDA-Public Use
  Company Number: CA-CELLTRION INC.-2022CA009897

PATIENT

DRUGS (10)
  1. INFLECTRA [Suspect]
     Active Substance: INFLIXIMAB-DYYB
     Indication: Crohn^s disease
     Dosage: 400 MG , Q 0, 2, 6, THEN EVERY 8 WEEKS
     Route: 042
     Dates: start: 20220307
  2. INFLECTRA [Suspect]
     Active Substance: INFLIXIMAB-DYYB
     Dosage: 400 MG , Q 0, 2, 6, THEN EVERY 8 WEEKS
     Route: 042
     Dates: start: 20220418
  3. INFLECTRA [Suspect]
     Active Substance: INFLIXIMAB-DYYB
     Dosage: 400 MG , Q 0, 2, 6, THEN EVERY 8 WEEKS
     Route: 042
     Dates: start: 20220613
  4. INFLECTRA [Suspect]
     Active Substance: INFLIXIMAB-DYYB
     Dosage: 400 MG , Q 0, 2, 6, THEN EVERY 8 WEEKS
     Route: 042
     Dates: start: 20220810
  5. CALCIUM [Concomitant]
     Active Substance: CALCIUM
     Dosage: UNK
  6. CIPROFLOXACIN [Concomitant]
     Active Substance: CIPROFLOXACIN
     Dosage: UNK
  7. IRON [Concomitant]
     Active Substance: IRON
     Dosage: UNK
  8. METRONIDAZOLE [Concomitant]
     Active Substance: METRONIDAZOLE
     Dosage: UNK
  9. PREDNISONE [Concomitant]
     Active Substance: PREDNISONE
     Dosage: UNK
  10. POTASSIUM [Concomitant]
     Active Substance: POTASSIUM
     Dosage: UNK

REACTIONS (3)
  - Weight increased [Not Recovered/Not Resolved]
  - Malaise [Recovering/Resolving]
  - Food intolerance [Recovering/Resolving]

NARRATIVE: CASE EVENT DATE: 20220613
